FAERS Safety Report 9507338 (Version 1)
Quarter: 2013Q3

REPORT INFORMATION
  Report Type: Spontaneous
  Country: US (occurrence: US)
  Receive Date: 20130909
  Receipt Date: 20130909
  Transmission Date: 20140515
  Serious: Yes (Life-Threatening)
  Sender: FDA-Public Use
  Company Number: US-PFIZER INC-2013256171

PATIENT
  Age: 66 Year
  Sex: Male
  Weight: 91 kg

DRUGS (4)
  1. ZOSYN [Suspect]
     Indication: OSTEOMYELITIS
     Dosage: 3.375 G, 4X/DAY (STERILE DILUENT 50 ML INFUSE OVER 30 MINUTES)
     Route: 042
     Dates: start: 20130723
  2. ZOSYN [Suspect]
     Dosage: 3.375 G, 4X/DAY (STERILE DILUENT 50 ML INFUSE OVER 30 MINUTES)
     Route: 042
  3. ZOSYN [Suspect]
     Dosage: 3.375 G, 4X/DAY (STERILE DILUENT 50 ML INFUSE OVER 30 MINUTES)
     Route: 042
  4. ZOSYN [Suspect]
     Dosage: 3.375 G, 4X/DAY (STERILE DILUENT 50 ML INFUSE OVER 30 MINUTES)
     Route: 042
     Dates: end: 20130804

REACTIONS (2)
  - Torsade de pointes [Recovered/Resolved]
  - Ventricular fibrillation [Recovered/Resolved]
